FAERS Safety Report 23347130 (Version 1)
Quarter: 2023Q4

REPORT INFORMATION
  Report Type: Spontaneous
  Country: US (occurrence: None)
  Receive Date: 20231228
  Receipt Date: 20231228
  Transmission Date: 20240110
  Serious: No
  Sender: FDA-Public Use
  Company Number: None

PATIENT
  Age: 4 Year
  Sex: Female
  Weight: 17.55 kg

DRUGS (1)
  1. CEFDINIR [Suspect]
     Active Substance: CEFDINIR

REACTIONS (2)
  - Incorrect dose administered [None]
  - Product label issue [None]

NARRATIVE: CASE EVENT DATE: 20231227
